FAERS Safety Report 8346845-7 (Version None)
Quarter: 2012Q2

REPORT INFORMATION
  Report Type: 
  Country: None (occurrence: None)
  Receive Date: 20120509
  Receipt Date: 20120430
  Transmission Date: 20120825
  Serious: Yes (Hospitalization)
  Sender: FDA-Public Use
  Company Number: US-VERTEX PHARMACEUTICALS INC.-AE-2012-006136

PATIENT
  Sex: Female

DRUGS (3)
  1. RIBAVIRIN [Concomitant]
     Indication: HEPATITIS C
     Dates: start: 20120201
  2. INCIVEK [Suspect]
     Indication: HEPATITIS C
     Dates: start: 20120201, end: 20120401
  3. PEGINTERFERON ALFA-2A [Concomitant]
     Indication: HEPATITIS C
     Dates: start: 20120201

REACTIONS (4)
  - NAUSEA [None]
  - ELECTROLYTE IMBALANCE [None]
  - VOMITING [None]
  - ANAEMIA [None]
